FAERS Safety Report 6136396-2 (Version None)
Quarter: 2009Q1

REPORT INFORMATION
  Report Type: 
  Country: None (occurrence: None)
  Receive Date: 20090330
  Receipt Date: 20090320
  Transmission Date: 20090719
  Serious: Yes (Hospitalization)
  Sender: FDA-Public Use
  Company Number: US-ROCHE-623391

PATIENT
  Age: 40 Year
  Sex: Female

DRUGS (4)
  1. OSELTAMIVIR [Suspect]
     Dosage: RECEIVED ONLY ONE DOSE, OTHER INDICATION: VIRAL SYMPTOMS.
     Route: 065
     Dates: start: 20081001, end: 20081001
  2. NAPROXEN [Interacting]
     Indication: VIRAL INFECTION
     Route: 065
     Dates: start: 20081001
  3. HYDROCODONE BITARTRATE [Interacting]
     Indication: VIRAL INFECTION
     Route: 065
     Dates: start: 20081001
  4. TYLENOL [Concomitant]
     Route: 065

REACTIONS (3)
  - CARDIAC TAMPONADE [None]
  - DRUG INTERACTION [None]
  - RESTRICTIVE CARDIOMYOPATHY [None]
